FAERS Safety Report 5487806-5 (Version None)
Quarter: 2007Q3

REPORT INFORMATION
  Report Type: 
  Country: None (occurrence: None)
  Receive Date: 20070925
  Receipt Date: 20070606
  Transmission Date: 20080115
  Serious: No
  Sender: FDA-Public Use
  Company Number: 2007US001147

PATIENT
  Sex: Male

DRUGS (6)
  1. VESICARE [Suspect]
     Indication: DRUG USE FOR UNKNOWN INDICATION
     Dosage: UID/QD, ORAL 5 MG
     Route: 048
     Dates: end: 20070515
  2. VESICARE [Suspect]
     Indication: DRUG USE FOR UNKNOWN INDICATION
     Dosage: UID/QD, ORAL 5 MG
     Route: 048
     Dates: start: 20070521
  3. PLAVIX [Concomitant]
  4. COREG [Concomitant]
  5. ACTONEL [Concomitant]
  6. HYZAAR [Concomitant]

REACTIONS (2)
  - DIZZINESS [None]
  - VISION BLURRED [None]
